FAERS Safety Report 10914580 (Version 5)
Quarter: 2017Q2

REPORT INFORMATION
  Report Type: Spontaneous
  Country: US (occurrence: US)
  Receive Date: 20150313
  Receipt Date: 20170629
  Transmission Date: 20170829
  Serious: No
  Sender: FDA-Public Use
  Company Number: US-GLAXOSMITHKLINE-US2015026708

PATIENT
  Age: 68 Year
  Sex: Male
  Weight: 80.27 kg

DRUGS (2)
  1. ADVAIR DISKUS [Suspect]
     Active Substance: FLUTICASONE PROPIONATE\SALMETEROL XINAFOATE
     Indication: EMPHYSEMA
     Dosage: 1 PUFF(S), BID
     Route: 055
  2. ADVAIR DISKUS [Suspect]
     Active Substance: FLUTICASONE PROPIONATE\SALMETEROL XINAFOATE
     Dosage: 1 PUFF(S), BID
     Route: 055
     Dates: start: 20170401

REACTIONS (4)
  - Expired product administered [Unknown]
  - Product quality issue [Unknown]
  - Device use error [Unknown]
  - Medication error [Unknown]

NARRATIVE: CASE EVENT DATE: 201705
